FAERS Safety Report 25654072 (Version 2)
Quarter: 2025Q3

REPORT INFORMATION
  Report Type: Spontaneous
  Country: CH (occurrence: CH)
  Receive Date: 20250807
  Receipt Date: 20250929
  Transmission Date: 20251020
  Serious: Yes (Hospitalization, Other)
  Sender: MYLAN
  Company Number: CH-MYLANLABS-2025M1066608

PATIENT
  Age: 43 Year
  Sex: Male

DRUGS (3)
  1. CLOZAPINE [Suspect]
     Active Substance: CLOZAPINE
     Indication: Schizophrenia
     Dosage: 400 MILLIGRAM, QD, RECEIVED FOR 20 YEARS
     Dates: start: 1998
  2. OLANZAPINE [Suspect]
     Active Substance: OLANZAPINE
     Indication: Schizophrenia
  3. RISPERIDONE [Suspect]
     Active Substance: RISPERIDONE
     Indication: Schizophrenia
     Dosage: 2 MILLIGRAM, QD, RECEIVED FOR 20 YEARS
     Dates: start: 1998

REACTIONS (4)
  - Skin discolouration [Recovered/Resolved]
  - Skin hyperpigmentation [Recovered/Resolved]
  - Arrhythmia [Unknown]
  - Drug ineffective [Unknown]

NARRATIVE: CASE EVENT DATE: 20120101
